FAERS Safety Report 6942817-5 (Version None)
Quarter: 2010Q3

REPORT INFORMATION
  Report Type: 
  Country: None (occurrence: None)
  Receive Date: 20100826
  Receipt Date: 20100812
  Transmission Date: 20110219
  Serious: Yes (Other)
  Sender: FDA-Public Use
  Company Number: US-ROCHE-720826

PATIENT
  Age: 50 Year
  Sex: Male

DRUGS (4)
  1. AVASTIN [Suspect]
     Dosage: DURATION OF USE: 3.5 YEARS.FORM, DOSE: UNKNOWN.
     Route: 065
  2. FLUOROURACIL [Suspect]
     Dosage: DOSE, FREQUENCY, START AND STOP DATES: UNKNOWN. DRUG REPORTED AS FOLFOX.
     Route: 065
  3. FOLINIC ACID [Suspect]
     Dosage: DOSE, FREQUENCY, START AND STOP DATES: UNKNOWN.DRUG REPORTED AS FOLFOX.
     Route: 065
  4. OXALIPLATIN [Suspect]
     Dosage: DOSE, FREQUENCY, START AND STOP DATES: UNKNOWN. DRUG REPORTED AS FOLFOX.
     Route: 065

REACTIONS (5)
  - HEPATIC CIRRHOSIS [None]
  - HYPERSPLENISM [None]
  - NEUROPATHY PERIPHERAL [None]
  - PORTAL HYPERTENSION [None]
  - THROMBOCYTOPENIA [None]
